FAERS Safety Report 14861571 (Version 1)
Quarter: 2018Q2

REPORT INFORMATION
  Report Type: Spontaneous
  Country: US (occurrence: US)
  Receive Date: 20180508
  Receipt Date: 20180508
  Transmission Date: 20180711
  Serious: No
  Sender: FDA-Public Use
  Company Number: US-PERRIGO-17US026587

PATIENT
  Age: 56 Year
  Sex: Female
  Weight: 48.73 kg

DRUGS (2)
  1. PERMETHRIN. [Suspect]
     Active Substance: PERMETHRIN
     Dosage: APPROXIMATELY 30 G, QHS
     Route: 061
     Dates: start: 20170903, end: 20170906
  2. PERMETHRIN. [Suspect]
     Active Substance: PERMETHRIN
     Indication: ACARODERMATITIS
     Dosage: APPROXIMATELY 30 G, QHS
     Route: 061
     Dates: start: 20170903, end: 20170906

REACTIONS (7)
  - Pruritus [Not Recovered/Not Resolved]
  - Joint swelling [Recovered/Resolved]
  - Fatigue [Not Recovered/Not Resolved]
  - Erythema [Not Recovered/Not Resolved]
  - Pain [Not Recovered/Not Resolved]
  - Peripheral swelling [Not Recovered/Not Resolved]
  - Skin ulcer [Not Recovered/Not Resolved]

NARRATIVE: CASE EVENT DATE: 201709
